FAERS Safety Report 4885831-6 (Version None)
Quarter: 2006Q1

REPORT INFORMATION
  Report Type: 
  Country: None (occurrence: None)
  Receive Date: 20060120
  Receipt Date: 20060109
  Transmission Date: 20060701
  Serious: Yes (Life-Threatening)
  Sender: FDA-Public Use
  Company Number: PHEH2006US00739

PATIENT
  Age: 57 Year
  Sex: Male

DRUGS (4)
  1. ZYPREXA [Concomitant]
     Indication: SCHIZOPHRENIA
     Dosage: 30 MG, QHS
  2. ZOLOFT [Concomitant]
     Dosage: 150 MG, QD
  3. DEPAKOTE [Concomitant]
     Indication: SCHIZOPHRENIA
     Dosage: 1000 MG, QHS
  4. CLOZARIL [Suspect]
     Indication: SCHIZOPHRENIA
     Dosage: 100MG BID, 500MG QHS
     Dates: start: 19970101

REACTIONS (5)
  - ANAEMIA [None]
  - CYANOSIS [None]
  - LUNG NEOPLASM MALIGNANT [None]
  - PNEUMONECTOMY [None]
  - TERMINAL STATE [None]
